FAERS Safety Report 10381534 (Version 1)
Quarter: 2014Q1

REPORT INFORMATION
  Report Type: Spontaneous
  Country: US (occurrence: None)
  Receive Date: 20140306
  Receipt Date: 20140306
  Transmission Date: 20141002
  Serious: Yes (Disabling)
  Sender: FDA-Public Use
  Company Number: 163-21880-13040647

PATIENT
  Age: 68 Year
  Sex: Female
  Weight: 63.96 kg

DRUGS (4)
  1. REVLIMID (LENALIDOMIDE) (10 MILLIGRAM, CAPSULES) [Suspect]
     Indication: PLASMA CELL MYELOMA
     Route: 048
     Dates: start: 20110613
  2. NEURONTIN (GABAPENTIN) [Concomitant]
  3. PERCOCET (OXYCOCET) [Concomitant]
  4. ASA (ACETYLSALICYLIC ACID) [Concomitant]

REACTIONS (3)
  - Plasma cell myeloma [None]
  - Drug ineffective [None]
  - Paraesthesia [None]
